FAERS Safety Report 8947599 (Version 1)
Quarter: 2012Q4

REPORT INFORMATION
  Report Type: 
  Country: GB (occurrence: GB)
  Receive Date: 20121204
  Receipt Date: 20121204
  Transmission Date: 20130627
  Serious: Yes (Hospitalization)
  Sender: FDA-Public Use
  Company Number: GB-AMGEN-GBRCT2012077895

PATIENT
  Age: 45 Year
  Sex: Female
  Weight: 59.8 kg

DRUGS (3)
  1. PEGFILGRASTIM [Suspect]
     Indication: BREAST CANCER
     Dosage: 100 mg/m2, UNK
     Route: 042
     Dates: start: 20081028
  2. CAPECITABINE [Concomitant]
     Indication: BREAST CANCER
     Dosage: 1250 mg/m2, UNK
     Route: 048
     Dates: start: 20081028
  3. EPIRUBICIN [Concomitant]
     Indication: BREAST CANCER
     Dosage: 100 mg/m2, q2wk
     Route: 042
     Dates: start: 20081028

REACTIONS (2)
  - Swelling face [Recovered/Resolved]
  - Mouth ulceration [Recovered/Resolved]
